FAERS Safety Report 24164824 (Version 2)
Quarter: 2024Q3

REPORT INFORMATION
  Report Type: Spontaneous
  Country: US (occurrence: US)
  Receive Date: 20240801
  Receipt Date: 20240902
  Transmission Date: 20241017
  Serious: Yes (Other)
  Sender: BRISTOL MYERS SQUIBB
  Company Number: US-BRISTOL-MYERS SQUIBB COMPANY-2024-118806

PATIENT
  Age: 81 Year
  Sex: Female
  Weight: 78.02 kg

DRUGS (3)
  1. POMALYST [Suspect]
     Active Substance: POMALIDOMIDE
     Indication: Plasma cell myeloma
     Dosage: 3 WEEKS ON 1 WEEK OFF?ONCE DAILY FOR 21 DAYS ON THEN 7 DAYS OFF
     Route: 048
  2. DEXAMETHASONE [Suspect]
     Active Substance: DEXAMETHASONE
     Indication: Product used for unknown indication
  3. CYCLOPHOSPHAMIDE [Suspect]
     Active Substance: CYCLOPHOSPHAMIDE
     Indication: Product used for unknown indication

REACTIONS (6)
  - Cataract [Recovering/Resolving]
  - Diarrhoea [Recovering/Resolving]
  - Psychomotor hyperactivity [Recovering/Resolving]
  - COVID-19 [Recovering/Resolving]
  - Malaise [Unknown]
  - Arthralgia [Not Recovered/Not Resolved]
